FAERS Safety Report 7659821-4 (Version None)
Quarter: 2011Q3

REPORT INFORMATION
  Report Type: 
  Country: None (occurrence: None)
  Receive Date: 20110805
  Receipt Date: 20110729
  Transmission Date: 20111222
  Serious: Yes (Other)
  Sender: FDA-Public Use
  Company Number: US-JNJFOC-20110801813

PATIENT
  Sex: Female
  Weight: 45.36 kg

DRUGS (1)
  1. LEVAQUIN [Suspect]
     Indication: URINARY TRACT INFECTION
     Route: 048
     Dates: start: 20110720, end: 20110726

REACTIONS (12)
  - BACK PAIN [None]
  - DYSURIA [None]
  - HEADACHE [None]
  - RENAL COLIC [None]
  - PRURITUS [None]
  - CONSTIPATION [None]
  - INSOMNIA [None]
  - DYSPNOEA [None]
  - EMOTIONAL DISORDER [None]
  - DEPRESSION [None]
  - ARTHRALGIA [None]
  - ABNORMAL DREAMS [None]
